FAERS Safety Report 10741793 (Version 2)
Quarter: 2015Q1

REPORT INFORMATION
  Report Type: Other
  Country: FR (occurrence: FR)
  Receive Date: 20150127
  Receipt Date: 20150306
  Transmission Date: 20150721
  Serious: Yes (Hospitalization)
  Sender: FDA-Public Use
  Company Number: FR-ASTELLAS-2015US002285

PATIENT
  Age: 56 Year
  Sex: Male

DRUGS (25)
  1. VANCOMYCINE [Suspect]
     Active Substance: VANCOMYCIN
     Indication: PRODUCT USED FOR UNKNOWN INDICATION
     Route: 042
     Dates: start: 20141124, end: 20141130
  2. TRANXENE T-TAB [Concomitant]
     Active Substance: CLORAZEPATE DIPOTASSIUM
     Indication: PRODUCT USED FOR UNKNOWN INDICATION
     Dosage: UNK UNK, UNKNOWN FREQ.
     Route: 065
     Dates: start: 20141126
  3. AMPHOTERICIN B, LIPOSOME [Suspect]
     Active Substance: AMPHOTERICIN B
     Indication: PRODUCT USED FOR UNKNOWN INDICATION
     Route: 042
     Dates: start: 20141121, end: 201412
  4. TASIGNA [Suspect]
     Active Substance: NILOTINIB
     Indication: CHRONIC MYELOID LEUKAEMIA
     Route: 048
     Dates: start: 201404, end: 20141030
  5. CYTARABINE. [Suspect]
     Active Substance: CYTARABINE
     Indication: CHRONIC MYELOID LEUKAEMIA
     Route: 042
     Dates: start: 20141105, end: 20141111
  6. CERUBIDINE [Suspect]
     Active Substance: DAUNORUBICIN HYDROCHLORIDE
     Indication: CHRONIC MYELOID LEUKAEMIA
     Route: 042
     Dates: start: 20141105, end: 20141106
  7. CERUBIDINE [Suspect]
     Active Substance: DAUNORUBICIN HYDROCHLORIDE
     Route: 042
     Dates: start: 20141107, end: 20141108
  8. TOPALGIC                           /00599202/ [Suspect]
     Active Substance: TRAMADOL
     Indication: PRODUCT USED FOR UNKNOWN INDICATION
     Route: 048
     Dates: start: 201411, end: 201412
  9. ACUPAN [Concomitant]
     Active Substance: NEFOPAM HYDROCHLORIDE
     Indication: PRODUCT USED FOR UNKNOWN INDICATION
     Dosage: UNK UNK, UNKNOWN FREQ.
     Route: 065
     Dates: start: 20141121
  10. MITOXANTRONE [Concomitant]
     Active Substance: MITOXANTRONE HYDROCHLORIDE
     Indication: PRODUCT USED FOR UNKNOWN INDICATION
     Dosage: UNK UNK, UNKNOWN FREQ.
     Route: 065
  11. METHYLPREDNISOLONE. [Suspect]
     Active Substance: METHYLPREDNISOLONE
     Indication: PRODUCT USED FOR UNKNOWN INDICATION
     Route: 037
     Dates: start: 20141121, end: 20141123
  12. FLAGYL [Suspect]
     Active Substance: METRONIDAZOLE\METRONIDAZOLE HYDROCHLORIDE
     Indication: PRODUCT USED FOR UNKNOWN INDICATION
     Route: 048
     Dates: start: 20141125, end: 201412
  13. POLARAMINE [Suspect]
     Active Substance: DEXCHLORPHENIRAMINE MALEATE
     Indication: PRODUCT USED FOR UNKNOWN INDICATION
     Route: 042
     Dates: start: 20141121, end: 201412
  14. SPASFON                            /00765801/ [Concomitant]
     Active Substance: PHLOROGLUCINOL\1,3,5-TRIMETHOXYBENZENE
     Indication: PRODUCT USED FOR UNKNOWN INDICATION
     Dosage: UNK UNK, UNKNOWN FREQ.
     Route: 065
     Dates: start: 20141126
  15. ACICLOVIR [Suspect]
     Active Substance: ACYCLOVIR
     Indication: PRODUCT USED FOR UNKNOWN INDICATION
     Route: 042
     Dates: start: 20141126, end: 20141207
  16. TAZOCILLINE [Suspect]
     Active Substance: PIPERACILLIN SODIUM\TAZOBACTAM SODIUM
     Indication: PRODUCT USED FOR UNKNOWN INDICATION
     Route: 048
     Dates: start: 20141106, end: 20141126
  17. ZYVOXID [Suspect]
     Active Substance: LINEZOLID
     Indication: PRODUCT USED FOR UNKNOWN INDICATION
     Route: 048
     Dates: start: 20141110, end: 20141124
  18. EUPANTOL [Suspect]
     Active Substance: PANTOPRAZOLE SODIUM
     Indication: PRODUCT USED FOR UNKNOWN INDICATION
     Route: 042
     Dates: start: 20141127, end: 20141207
  19. PRIMPERAN [Concomitant]
     Active Substance: METOCLOPRAMIDE HYDROCHLORIDE
     Indication: PRODUCT USED FOR UNKNOWN INDICATION
     Dosage: UNK UNK, UNKNOWN FREQ.
     Route: 065
     Dates: start: 20141121
  20. CYTARABINE. [Suspect]
     Active Substance: CYTARABINE
     Route: 037
  21. METHOTREXATE [Suspect]
     Active Substance: METHOTREXATE
     Indication: CHRONIC MYELOID LEUKAEMIA
     Dosage: 15 MG, TOTAL
     Route: 037
     Dates: start: 20141121, end: 20141209
  22. ARACYTINE [Suspect]
     Active Substance: CYTARABINE
     Indication: CHRONIC MYELOID LEUKAEMIA
     Route: 037
     Dates: start: 20141121, end: 20141121
  23. ZOPHREN                            /00955301/ [Suspect]
     Active Substance: ONDANSETRON
     Indication: PRODUCT USED FOR UNKNOWN INDICATION
     Route: 042
     Dates: start: 20141105, end: 201412
  24. CYTARABINE. [Suspect]
     Active Substance: CYTARABINE
     Route: 042
     Dates: start: 20141212
  25. TIENAM [Suspect]
     Active Substance: CILASTATIN SODIUM\IMIPENEM
     Indication: PRODUCT USED FOR UNKNOWN INDICATION
     Route: 042
     Dates: start: 20141126, end: 201412

REACTIONS (1)
  - Venous thrombosis limb [Recovering/Resolving]

NARRATIVE: CASE EVENT DATE: 20141201
